FAERS Safety Report 7310188-0 (Version None)
Quarter: 2011Q1

REPORT INFORMATION
  Report Type: 
  Country: None (occurrence: None)
  Receive Date: 20110224
  Receipt Date: 20110217
  Transmission Date: 20110831
  Serious: Yes (Death, Other)
  Sender: FDA-Public Use
  Company Number: CN-ASTELLAS-2011US000743

PATIENT
  Age: 56 Year
  Sex: Male

DRUGS (5)
  1. CASPOFUNGIN [Concomitant]
     Indication: CEREBRAL ASPERGILLOSIS
     Dosage: 50 MG, UID/QD
     Route: 042
  2. VORICONAZOLE [Concomitant]
     Dosage: UNK
     Route: 042
  3. AMBISOME [Suspect]
     Indication: CEREBRAL ASPERGILLOSIS
     Dosage: 60 MG, UID/QD
     Route: 042
  4. VORICONAZOLE [Concomitant]
     Indication: CEREBRAL ASPERGILLOSIS
     Dosage: 200 MG, Q12 HOURS
     Route: 042
  5. VORICONAZOLE [Concomitant]
     Dosage: UNK
     Route: 048

REACTIONS (2)
  - CEREBRAL ASPERGILLOSIS [None]
  - DRUG INEFFECTIVE [None]
